FAERS Safety Report 9869345 (Version 2)
Quarter: 2014Q1

REPORT INFORMATION
  Report Type: Spontaneous
  Country: US (occurrence: US)
  Receive Date: 20140205
  Receipt Date: 20140205
  Transmission Date: 20141002
  Serious: Yes (Hospitalization, Other)
  Sender: FDA-Public Use
  Company Number: US-JNJFOC-20131105641

PATIENT
  Age: 57 Year
  Sex: Female
  Weight: 86.81 kg

DRUGS (16)
  1. REMICADE [Suspect]
     Indication: RHEUMATOID ARTHRITIS
     Route: 042
     Dates: end: 20130713
  2. REMICADE [Suspect]
     Indication: RHEUMATOID ARTHRITIS
     Route: 042
     Dates: start: 20130510
  3. REMICADE [Suspect]
     Indication: RHEUMATOID ARTHRITIS
     Route: 042
     Dates: start: 20130426
  4. REMICADE [Suspect]
     Indication: RHEUMATOID ARTHRITIS
     Route: 042
     Dates: start: 20130607, end: 20130607
  5. LOPRESSOR [Concomitant]
     Indication: PALPITATIONS
     Route: 065
  6. CELEXA [Concomitant]
     Indication: DEPRESSION
     Route: 065
  7. PAMELOR [Concomitant]
     Indication: NEURALGIA
     Route: 065
  8. DELTASONE [Concomitant]
     Indication: RHEUMATOID ARTHRITIS
     Route: 065
  9. METHOTREXATE [Concomitant]
     Indication: RHEUMATOID ARTHRITIS
     Route: 048
     Dates: start: 20130426
  10. PRILOSEC [Concomitant]
     Indication: DYSPEPSIA
     Route: 065
  11. ADVIL [Concomitant]
     Route: 065
  12. MOTRIN [Concomitant]
     Route: 065
  13. VICODIN [Concomitant]
     Dosage: 5-500 MG PER TABLET
     Route: 065
  14. FLONASE [Concomitant]
     Dosage: DOSE REPORTED 50 MCG/ACT
     Route: 065
  15. ASPIRIN [Concomitant]
     Route: 065
  16. VITAMIN B COMPLEX [Concomitant]
     Route: 048

REACTIONS (10)
  - Morton^s neuralgia [Recovering/Resolving]
  - Drug hypersensitivity [Unknown]
  - Hypertension [Unknown]
  - Infection [Not Recovered/Not Resolved]
  - Dyspnoea [Recovered/Resolved]
  - Skin discolouration [Recovering/Resolving]
  - Rash pruritic [Recovering/Resolving]
  - Oral mucosal erythema [Not Recovered/Not Resolved]
  - Drug ineffective [Not Recovered/Not Resolved]
  - Chapped lips [Unknown]
